FAERS Safety Report 6081201-6 (Version None)
Quarter: 2009Q1

REPORT INFORMATION
  Report Type: 
  Country: None (occurrence: None)
  Receive Date: 20090213
  Receipt Date: 20090206
  Transmission Date: 20090719
  Serious: Yes (Death)
  Sender: FDA-Public Use
  Company Number: 2007-159391-NL

PATIENT
  Sex: Male
  Weight: 104.3 kg

DRUGS (1)
  1. ZEMURON [Suspect]
     Dosage: NOT KNOWN AS IT WAS NOT USED FOR A SURGICAL PROCEDURE

REACTIONS (2)
  - THERMAL BURN [None]
  - VICTIM OF HOMICIDE [None]
